FAERS Safety Report 7361798-6 (Version None)
Quarter: 2011Q1

REPORT INFORMATION
  Report Type: 
  Country: None (occurrence: None)
  Receive Date: 20110318
  Receipt Date: 20110221
  Transmission Date: 20110831
  Serious: No
  Sender: FDA-Public Use
  Company Number: US-B.I. PHARMACEUTICALS,INC./RIDGEFIELD-2011-BP-01623BP

PATIENT
  Sex: Male

DRUGS (6)
  1. SPIRIVA [Concomitant]
  2. SIMVASTATIN [Concomitant]
  3. METOPROLOL SUCCINATE [Concomitant]
  4. COMBIVENT [Suspect]
     Indication: CHRONIC OBSTRUCTIVE PULMONARY DISEASE
     Dosage: 16 PUF
  5. ENALAPRIL [Concomitant]
  6. FUROSEMIDE [Concomitant]

REACTIONS (1)
  - DRUG EFFECT DECREASED [None]
